FAERS Safety Report 9858320 (Version 4)
Quarter: 2014Q3

REPORT INFORMATION
  Report Type: Spontaneous
  Country: DE (occurrence: None)
  Receive Date: 20140129
  Receipt Date: 20140821
  Transmission Date: 20150326
  Serious: Yes (Hospitalization, Other)
  Sender: FDA-Public Use
  Company Number: 1401-0153

PATIENT
  Age: 83 Year
  Sex: Female

DRUGS (1)
  1. EYLEA [Suspect]
     Active Substance: AFLIBERCEPT
     Indication: AGE-RELATED MACULAR DEGENERATION
     Dosage: LEFT EYE
     Route: 031
     Dates: start: 201312, end: 201312

REACTIONS (5)
  - Vitreous floaters [None]
  - Eye haemorrhage [None]
  - Eye pain [None]
  - Vision blurred [None]
  - Endophthalmitis [None]

NARRATIVE: CASE EVENT DATE: 201401
